APPROVED DRUG PRODUCT: AMPYRA
Active Ingredient: DALFAMPRIDINE
Strength: 10MG
Dosage Form/Route: TABLET, EXTENDED RELEASE;ORAL
Application: N022250 | Product #001 | TE Code: AB
Applicant: MERZ PHARMACEUTICALS LLC
Approved: Jan 22, 2010 | RLD: Yes | RS: Yes | Type: RX